FAERS Safety Report 8886512 (Version 3)
Quarter: 2019Q2

REPORT INFORMATION
  Report Type: Spontaneous
  Country: US (occurrence: US)
  Receive Date: 20121105
  Receipt Date: 20190412
  Transmission Date: 20190711
  Serious: Yes (Death, Hospitalization, Other)
  Sender: FDA-Public Use
  Company Number: US-009507513-1206USA02281

PATIENT
  Sex: Female

DRUGS (9)
  1. FOSAMAX [Suspect]
     Active Substance: ALENDRONATE SODIUM
     Indication: OSTEOPOROSIS
     Dosage: 35 MG, UNK
     Dates: start: 1999, end: 2008
  2. FOSAMAX [Suspect]
     Active Substance: ALENDRONATE SODIUM
     Indication: OSTEOPOROSIS
     Dosage: 70 MILLIGRAM, QW
     Route: 048
     Dates: start: 20010824, end: 200808
  3. ALENDRONATE SODIUM. [Suspect]
     Active Substance: ALENDRONATE SODIUM
     Indication: OSTEOPOROSIS
     Dosage: 70 MILLIGRAM, QW
     Route: 048
     Dates: start: 20110114
  4. BONIVA [Suspect]
     Active Substance: IBANDRONATE SODIUM
     Indication: OSTEOPOROSIS
     Dosage: 150 MILLIGRAM, QM
     Route: 048
     Dates: start: 201008, end: 201010
  5. PREMPRO [Concomitant]
     Active Substance: ESTROGENS, CONJUGATED\MEDROXYPROGESTERONE ACETATE
     Indication: OSTEOPOROSIS
     Dosage: 0.625/2.5 UNK, QD
     Dates: start: 19990713
  6. FOSAMAX PLUS D [Suspect]
     Active Substance: ALENDRONATE SODIUM\CHOLECALCIFEROL
     Indication: OSTEOPOROSIS
     Dosage: 70 MG, QW
     Route: 048
     Dates: start: 20050908, end: 200511
  7. ALENDRONATE SODIUM. [Suspect]
     Active Substance: ALENDRONATE SODIUM
     Indication: OSTEOPOROSIS
     Dosage: 70 MG, QW
     Route: 048
     Dates: start: 200808, end: 201007
  8. VITAMINS (UNSPECIFIED) [Concomitant]
     Active Substance: VITAMINS
     Dosage: 1 DAILY
  9. CALCIUM (UNSPECIFIED) [Concomitant]
     Active Substance: CALCIUM
     Dosage: 1 DAILY

REACTIONS (30)
  - Tooth extraction [Unknown]
  - Tooth abscess [Unknown]
  - Medical device removal [Unknown]
  - Osteonecrosis of jaw [Unknown]
  - Open reduction of fracture [Unknown]
  - Tooth extraction [Unknown]
  - Weight decreased [Recovered/Resolved]
  - Low turnover osteopathy [Unknown]
  - Tooth disorder [Unknown]
  - Tooth extraction [Unknown]
  - Fall [Unknown]
  - Anxiety [Unknown]
  - Mouth ulceration [Unknown]
  - Comminuted fracture [Unknown]
  - Ankle fracture [Unknown]
  - Nausea [Unknown]
  - Depression [Unknown]
  - Palatal disorder [Unknown]
  - Fall [Unknown]
  - Tooth abscess [Unknown]
  - Dental caries [Unknown]
  - Open reduction of fracture [Unknown]
  - Decubitus ulcer [Recovering/Resolving]
  - Death [Fatal]
  - Femur fracture [Unknown]
  - Tooth extraction [Unknown]
  - Dental caries [Unknown]
  - Tooth infection [Unknown]
  - Hypertension [Unknown]
  - Hyponatraemia [Unknown]

NARRATIVE: CASE EVENT DATE: 20000619
